FAERS Safety Report 18917769 (Version 1)
Quarter: 2021Q1

REPORT INFORMATION
  Report Type: Report from Study
  Country: ES (occurrence: ES)
  Receive Date: 20210219
  Receipt Date: 20210219
  Transmission Date: 20210420
  Serious: Yes (Hospitalization)
  Sender: FDA-Public Use
  Company Number: NVSC2020ES332769

PATIENT
  Age: 70 Year
  Sex: Female
  Weight: 66.8 kg

DRUGS (31)
  1. PEMBROLIZUMAB. [Suspect]
     Active Substance: PEMBROLIZUMAB
     Dosage: 200 MG, Q3W
     Route: 042
     Dates: start: 20210203, end: 20210203
  2. BEMIPARIN [Concomitant]
     Active Substance: BEMIPARIN
     Dosage: 2500 IU, QD
     Route: 058
     Dates: start: 20201113, end: 20201123
  3. ACICLOVIR [Concomitant]
     Active Substance: ACYCLOVIR
     Indication: MENINGITIS ASEPTIC
     Dosage: 750 MG, TID
     Route: 048
     Dates: start: 20201113, end: 20201116
  4. CAPMATINIB [Suspect]
     Active Substance: CAPMATINIB
     Indication: NON-SMALL CELL LUNG CANCER
     Dosage: 400 MG, BID
     Route: 048
     Dates: start: 20201023, end: 20201103
  5. HYDROCHLOROTHIAZIDE. [Concomitant]
     Active Substance: HYDROCHLOROTHIAZIDE
     Indication: HYPERTENSION
     Dosage: 12.5 MG, QD
     Route: 048
     Dates: start: 2018
  6. NYSTATIN. [Concomitant]
     Active Substance: NYSTATIN
     Indication: PROPHYLAXIS
     Dosage: 10 ML, TID
     Route: 048
     Dates: start: 20201214, end: 20201222
  7. CAPMATINIB [Suspect]
     Active Substance: CAPMATINIB
     Dosage: MG, BID
     Route: 048
     Dates: start: 20201213, end: 20210203
  8. FAMOTIDINE. [Concomitant]
     Active Substance: FAMOTIDINE
     Dosage: 20 MG, QD
     Route: 048
     Dates: start: 20201203
  9. ENALAPRIL [Concomitant]
     Active Substance: ENALAPRIL
     Indication: HYPERTENSION
     Dosage: 20 MG, QD
     Route: 048
     Dates: start: 2018
  10. FAMOTIDINE. [Concomitant]
     Active Substance: FAMOTIDINE
     Indication: PROPHYLAXIS
     Dosage: 40 MG, QD
     Route: 048
     Dates: start: 20201106
  11. PANTOPRAZOL [Concomitant]
     Active Substance: PANTOPRAZOLE SODIUM
     Indication: PROPHYLAXIS
     Dosage: 20 MG, QD
     Route: 048
     Dates: start: 2019, end: 20201202
  12. MACROGOL [Concomitant]
     Active Substance: POLYETHYLENE GLYCOLS
     Indication: PROPHYLAXIS
     Dosage: 10 G, BID
     Route: 048
     Dates: start: 20201215
  13. CAPMATINIB [Suspect]
     Active Substance: CAPMATINIB
     Indication: METASTASIS
     Dosage: MG, BID
     Route: 048
     Dates: start: 20201104, end: 20201202
  14. CAPMATINIB [Suspect]
     Active Substance: CAPMATINIB
     Dosage: 400 MG, BID
     Route: 048
     Dates: start: 20201203, end: 20201212
  15. BEMIPARIN [Concomitant]
     Active Substance: BEMIPARIN
     Indication: PROPHYLAXIS
     Dosage: 3500 IU, QD
     Route: 058
     Dates: start: 20201106, end: 20201109
  16. BEMIPARIN [Concomitant]
     Active Substance: BEMIPARIN
     Dosage: 3500, UNIT, QD
     Route: 058
     Dates: start: 20201218, end: 20201223
  17. CEFEPIME [Concomitant]
     Active Substance: CEFEPIME HYDROCHLORIDE
     Indication: PYREXIA
     Dosage: 2 G, TID
     Route: 042
     Dates: start: 20201105, end: 20201109
  18. LORMETAZEPAM [Concomitant]
     Active Substance: LORMETAZEPAM
     Indication: ANXIETY
     Dosage: 1 MG, QD
     Route: 048
     Dates: start: 20201119, end: 20201123
  19. CETIRIZIN [Concomitant]
     Active Substance: CETIRIZINE HYDROCHLORIDE
     Indication: PROPHYLAXIS
     Dosage: 10 MG, BID
     Route: 048
     Dates: start: 20021214, end: 20201222
  20. CEFUROXIME. [Concomitant]
     Active Substance: CEFUROXIME
     Indication: PYREXIA
     Dosage: 500 MG, BID
     Route: 048
     Dates: start: 20201109, end: 20201113
  21. LORAZEPAM. [Concomitant]
     Active Substance: LORAZEPAM
     Indication: ANXIETY
     Dosage: 1 MG, QD
     Route: 048
     Dates: start: 20201123
  22. PEMBROLIZUMAB. [Suspect]
     Active Substance: PEMBROLIZUMAB
     Indication: NON-SMALL CELL LUNG CANCER
     Dosage: 200 MG, Q3W
     Route: 042
     Dates: start: 20201023, end: 20201023
  23. BECLOMETHASONE [Concomitant]
     Active Substance: BECLOMETHASONE
     Indication: PROPHYLAXIS
     Dosage: 200 UG, BID
     Route: 055
     Dates: start: 20201106, end: 20201109
  24. MEROPENEM. [Concomitant]
     Active Substance: MEROPENEM
     Indication: PYREXIA
     Dosage: 1 G, TID
     Route: 042
     Dates: start: 20201104, end: 20201105
  25. LEVOTHYROXINE. [Concomitant]
     Active Substance: LEVOTHYROXINE
     Indication: THYROIDECTOMY
     Dosage: 112, 125 UG, OTHER
     Route: 048
     Dates: start: 2001
  26. TRAZODONE [Concomitant]
     Active Substance: TRAZODONE HYDROCHLORIDE
     Indication: ANXIETY
     Dosage: 100 MG, QD
     Route: 048
     Dates: start: 2018
  27. PEMBROLIZUMAB. [Suspect]
     Active Substance: PEMBROLIZUMAB
     Indication: METASTASIS
     Dosage: 200 MG, Q3W
     Route: 042
     Dates: start: 20201203, end: 20201203
  28. METAMIZOLE [Concomitant]
     Active Substance: METAMIZOLE
     Indication: PYREXIA
     Dosage: 2 G, TID
     Route: 042
     Dates: start: 20201104, end: 20201109
  29. FORMOTEROL [Concomitant]
     Active Substance: FORMOTEROL
     Indication: PROPHYLAXIS
     Dosage: 6 UG, BID
     Route: 055
     Dates: start: 20201106, end: 20201109
  30. ZOLPIDEM [Concomitant]
     Active Substance: ZOLPIDEM TARTRATE
     Indication: ANXIETY
     Dosage: 10 MG, QD
     Route: 048
     Dates: start: 2018
  31. CEFTRIAXONE. [Concomitant]
     Active Substance: CEFTRIAXONE
     Indication: MENINGITIS ASEPTIC
     Dosage: 2 G, BID
     Route: 042
     Dates: start: 20201113, end: 20201123

REACTIONS (1)
  - Diabetic ketoacidosis [Recovered/Resolved]

NARRATIVE: CASE EVENT DATE: 20201213
